FAERS Safety Report 19613958 (Version 1)
Quarter: 2021Q3

REPORT INFORMATION
  Report Type: Spontaneous
  Country: US (occurrence: US)
  Receive Date: 20210727
  Receipt Date: 20210727
  Transmission Date: 20211014
  Serious: Yes (Hospitalization)
  Sender: FDA-Public Use
  Company Number: US-FARMAPROD-202107-1173

PATIENT
  Sex: Male

DRUGS (11)
  1. OXERVATE [Suspect]
     Active Substance: CENEGERMIN-BKBJ
     Indication: ULCERATIVE KERATITIS
  2. PROGRAF [Concomitant]
     Active Substance: TACROLIMUS
  3. OXERVATE [Suspect]
     Active Substance: CENEGERMIN-BKBJ
     Indication: NEUROTROPHIC KERATOPATHY
     Route: 047
     Dates: start: 20210707
  4. OXERVATE [Suspect]
     Active Substance: CENEGERMIN-BKBJ
     Indication: HYPOAESTHESIA EYE
  5. ASPIRIN. [Concomitant]
     Active Substance: ASPIRIN
  6. PRAVASTATIN SODIUM. [Concomitant]
     Active Substance: PRAVASTATIN SODIUM
  7. PREDNISONE. [Concomitant]
     Active Substance: PREDNISONE
  8. METOPROLOL TARTRATE. [Concomitant]
     Active Substance: METOPROLOL TARTRATE
  9. CELLCEPT [Concomitant]
     Active Substance: MYCOPHENOLATE MOFETIL\MYCOPHENOLATE MOFETIL HYDROCHLORIDE
  10. OMEGA 3?6?9 [Concomitant]
     Active Substance: FISH OIL
  11. NORVASC [Concomitant]
     Active Substance: AMLODIPINE BESYLATE

REACTIONS (3)
  - Vision blurred [Unknown]
  - Lymphoma [Unknown]
  - Visual impairment [Unknown]
